FAERS Safety Report 5829692-7 (Version None)
Quarter: 2008Q3

REPORT INFORMATION
  Report Type: 
  Country: None (occurrence: None)
  Receive Date: 20080731
  Receipt Date: 20080731
  Transmission Date: 20090109
  Serious: Yes (Hospitalization)
  Sender: FDA-Public Use
  Company Number: None

PATIENT
  Sex: Male

DRUGS (17)
  1. REVLIMID [Suspect]
     Indication: PROSTATE CANCER
     Dosage: 25 MG QDAY X 21 PO
     Route: 048
     Dates: start: 20080708
  2. ATENOLOL [Concomitant]
  3. ZETIA [Concomitant]
  4. CALCIUM [Concomitant]
  5. FOSAMAX [Concomitant]
  6. LUPRON [Concomitant]
  7. GLYBURIDE [Concomitant]
  8. FELODIPINE [Concomitant]
  9. LESCOL [Concomitant]
  10. SORBIC ACID [Concomitant]
  11. GABAPENTIN [Concomitant]
  12. VITAMIN E [Concomitant]
  13. HYDROCHLOROTHIAZIDE [Concomitant]
  14. LISINOPRIL [Concomitant]
  15. METFORMIN HCL [Concomitant]
  16. ASPIRIN [Concomitant]
  17. OMEGA 3 FATTY ACIDS [Concomitant]

REACTIONS (5)
  - ATRIAL FIBRILLATION [None]
  - CARDIAC OUTPUT DECREASED [None]
  - COUGH [None]
  - FLUID OVERLOAD [None]
  - OEDEMA PERIPHERAL [None]
